FAERS Safety Report 15208866 (Version 1)
Quarter: 2018Q3

REPORT INFORMATION
  Report Type: Spontaneous
  Country: US (occurrence: US)
  Receive Date: 20180727
  Receipt Date: 20180727
  Transmission Date: 20181010
  Serious: Yes (Other)
  Sender: FDA-Public Use
  Company Number: US-ELI_LILLY_AND_COMPANY-US201807007800

PATIENT
  Sex: Male

DRUGS (5)
  1. HUMATROPE [Suspect]
     Active Substance: SOMATROPIN
     Dosage: 1.6 DF, UNKNOWN
     Route: 065
  2. HUMATROPE [Suspect]
     Active Substance: SOMATROPIN
     Dosage: 2.2 DF, UNKNOWN
     Route: 065
  3. HUMATROPE [Suspect]
     Active Substance: SOMATROPIN
     Indication: ATTENTION DEFICIT/HYPERACTIVITY DISORDER
     Dosage: 2.4 DF, UNKNOWN
     Route: 065
  4. HUMATROPE [Suspect]
     Active Substance: SOMATROPIN
     Dosage: 1.8 DF, UNKNOWN
     Route: 065
  5. HUMATROPE [Suspect]
     Active Substance: SOMATROPIN
     Dosage: 1.0 DF, UNKNOWN
     Route: 065

REACTIONS (8)
  - Amnesia [Not Recovered/Not Resolved]
  - Anxiety [Recovering/Resolving]
  - Crying [Not Recovered/Not Resolved]
  - Suicide attempt [Not Recovered/Not Resolved]
  - Impatience [Not Recovered/Not Resolved]
  - Impulsive behaviour [Not Recovered/Not Resolved]
  - Laboratory test abnormal [Recovering/Resolving]
  - Fear [Not Recovered/Not Resolved]
